FAERS Safety Report 23843229 (Version 1)
Quarter: 2024Q2

REPORT INFORMATION
  Report Type: Spontaneous
  Country: US (occurrence: None)
  Receive Date: 20240510
  Receipt Date: 20240510
  Transmission Date: 20240715
  Serious: Yes (Hospitalization)
  Sender: FDA-Public Use
  Company Number: None

PATIENT
  Age: 63 Year
  Sex: Male
  Weight: 62.6 kg

DRUGS (1)
  1. EMPAGLIFLOZIN [Suspect]
     Active Substance: EMPAGLIFLOZIN
     Indication: Acidosis
     Dates: start: 20210624, end: 20220526

REACTIONS (13)
  - Hypophagia [None]
  - Failure to thrive [None]
  - Fatigue [None]
  - Movement disorder [None]
  - Asthenia [None]
  - Heart rate increased [None]
  - Blood pressure increased [None]
  - Blood glucose increased [None]
  - Urinary retention [None]
  - Pneumonia aspiration [None]
  - Pneumonitis aspiration [None]
  - Metabolic acidosis [None]
  - Euglycaemic diabetic ketoacidosis [None]

NARRATIVE: CASE EVENT DATE: 20220530
